FAERS Safety Report 11675778 (Version 3)
Quarter: 2016Q1

REPORT INFORMATION
  Report Type: Spontaneous
  Country: IT (occurrence: IT)
  Receive Date: 20151028
  Receipt Date: 20160114
  Transmission Date: 20160525
  Serious: Yes (Hospitalization)
  Sender: FDA-Public Use
  Company Number: PHHY2015IT136259

PATIENT
  Age: 16 Year
  Sex: Female
  Weight: 58 kg

DRUGS (3)
  1. MORPHINE [Concomitant]
     Active Substance: MORPHINE
     Indication: OSTEOSARCOMA
     Dosage: 20 MG, UNK
     Route: 042
     Dates: start: 20151012, end: 20151014
  2. METHOTREXATE [Suspect]
     Active Substance: METHOTREXATE
     Indication: CHEMOTHERAPY
     Dosage: 19.2 MG, QD
     Route: 042
     Dates: start: 20151012, end: 20151012
  3. ONDANSETRON [Concomitant]
     Active Substance: ONDANSETRON
     Indication: NAUSEA
     Route: 042
     Dates: start: 20151012

REACTIONS (3)
  - Pruritus [Recovered/Resolved]
  - Laryngeal oedema [Recovered/Resolved]
  - Throat tightness [Recovered/Resolved]

NARRATIVE: CASE EVENT DATE: 20151012
